FAERS Safety Report 7016507-7 (Version None)
Quarter: 2010Q3

REPORT INFORMATION
  Report Type: 
  Country: None (occurrence: None)
  Receive Date: 20100927
  Receipt Date: 20100922
  Transmission Date: 20110219
  Serious: Yes (Hospitalization)
  Sender: FDA-Public Use
  Company Number: A0802670A

PATIENT
  Age: 46 Year
  Sex: Male
  Weight: 110.5 kg

DRUGS (4)
  1. AVANDIA [Suspect]
     Dosage: 4MG TWICE PER DAY
     Route: 048
     Dates: start: 20000520, end: 20050503
  2. ADDERALL 10 [Concomitant]
  3. AVAPRO [Concomitant]
  4. LOPRESSOR [Concomitant]

REACTIONS (4)
  - CORONARY ARTERY DISEASE [None]
  - DRESSLER'S SYNDROME [None]
  - MYOCARDIAL INFARCTION [None]
  - PLEURAL EFFUSION [None]
